FAERS Safety Report 4937733-4 (Version None)
Quarter: 2006Q1

REPORT INFORMATION
  Report Type: 
  Country: None (occurrence: None)
  Receive Date: 20060306
  Receipt Date: 20060301
  Transmission Date: 20060701
  Serious: Yes (Other)
  Sender: FDA-Public Use
  Company Number: S06-USA-00212-01

PATIENT
  Age: 43 Year
  Sex: Female

DRUGS (3)
  1. THYROID TAB [Suspect]
     Indication: HYPOTHYROIDISM
     Dosage: 90 MG QD PO
     Route: 048
     Dates: start: 20041101, end: 20060111
  2. THYROID TAB [Suspect]
     Indication: HYPOTHYROIDISM
     Dosage: 60 MG QD PO
     Route: 048
     Dates: start: 20040301, end: 20041101
  3. SULFAMETHOXAZOLE + TRIMETHOPRIM [Suspect]
     Indication: CUTANEOUS LUPUS ERYTHEMATOSUS
     Dates: start: 20051223

REACTIONS (7)
  - BACTERIAL INFECTION [None]
  - CUTANEOUS LUPUS ERYTHEMATOSUS [None]
  - GOITRE [None]
  - HYPERSENSITIVITY [None]
  - LARYNGITIS [None]
  - MASS [None]
  - VOCAL CORD DISORDER [None]
